FAERS Safety Report 5476972-3 (Version None)
Quarter: 2007Q4

REPORT INFORMATION
  Report Type: 
  Country: None (occurrence: None)
  Receive Date: 20071003
  Receipt Date: 20071003
  Transmission Date: 20080405
  Serious: Yes (Other)
  Sender: FDA-Public Use
  Company Number: None

PATIENT
  Age: 58 Year
  Sex: Female
  Weight: 93.441 kg

DRUGS (2)
  1. ABSORBINE JR. NO STRENGTH LISTED ABSORBINE JR. [Suspect]
     Indication: ARTHRALGIA
     Dosage: ONE PATCH FOR UP TO 8 HOURS TOP
     Route: 061
     Dates: start: 20071001, end: 20071001
  2. ABSORBINE JR. NO STRENGTH LISTED ABSORBINE JR. [Suspect]
     Indication: ARTHRITIS
     Dosage: ONE PATCH FOR UP TO 8 HOURS TOP
     Route: 061
     Dates: start: 20071001, end: 20071001

REACTIONS (2)
  - DISTURBANCE IN ATTENTION [None]
  - PRURITUS [None]
